FAERS Safety Report 7420859-3 (Version None)
Quarter: 2011Q2

REPORT INFORMATION
  Report Type: 
  Country: None (occurrence: None)
  Receive Date: 20110418
  Receipt Date: 20110408
  Transmission Date: 20111010
  Serious: Yes (Other)
  Sender: FDA-Public Use
  Company Number: US-ROCHE-770415

PATIENT
  Sex: Male

DRUGS (3)
  1. PEGASYS [Suspect]
     Indication: HEPATITIS C
     Dosage: FORM: PFS
     Route: 058
     Dates: start: 20100913
  2. COPEGUS [Suspect]
     Indication: HEPATITIS C
     Dosage: DIVIDED DOSES
     Route: 065
     Dates: start: 20110301
  3. RIBAVIRIN [Suspect]
     Indication: HEPATITIS C
     Dosage: DIVIDED DOSES
     Route: 048
     Dates: start: 20100913, end: 20110301

REACTIONS (11)
  - BLOOD ALBUMIN INCREASED [None]
  - TREMOR [None]
  - PAIN [None]
  - BLINDNESS UNILATERAL [None]
  - ABDOMINAL PAIN [None]
  - DYSPNOEA [None]
  - DECREASED APPETITE [None]
  - SOMNOLENCE [None]
  - VOMITING [None]
  - FEELING COLD [None]
  - NIGHT SWEATS [None]
